FAERS Safety Report 6891540-4 (Version None)
Quarter: 2010Q3

REPORT INFORMATION
  Report Type: 
  Country: None (occurrence: None)
  Receive Date: 20100731
  Receipt Date: 20071004
  Transmission Date: 20110219
  Serious: No
  Sender: FDA-Public Use
  Company Number: US-PFIZER INC-2007026718

PATIENT
  Sex: Male

DRUGS (3)
  1. NORVASC [Interacting]
  2. VIAGRA [Suspect]
  3. ACETAMINOPHEN [Interacting]

REACTIONS (3)
  - DRUG INTERACTION [None]
  - ERECTILE DYSFUNCTION [None]
  - HEADACHE [None]
